FAERS Safety Report 10249547 (Version 1)
Quarter: 2014Q2

REPORT INFORMATION
  Report Type: Spontaneous
  Country: US (occurrence: None)
  Receive Date: 20140618
  Receipt Date: 20140618
  Transmission Date: 20141212
  Serious: No
  Sender: FDA-Public Use
  Company Number: CC14-0679

PATIENT
  Sex: Female

DRUGS (1)
  1. KETOCONAZOLE [Suspect]
     Indication: SEBORRHOEIC DERMATITIS
     Dosage: UNKNOWN DOSE

REACTIONS (2)
  - Seborrhoeic dermatitis [None]
  - Condition aggravated [None]
